FAERS Safety Report 16190121 (Version 2)
Quarter: 2019Q2

REPORT INFORMATION
  Report Type: Spontaneous
  Country: PK (occurrence: PK)
  Receive Date: 20190412
  Receipt Date: 20190502
  Transmission Date: 20190711
  Serious: Yes (Other)
  Sender: FDA-Public Use
  Company Number: PHHY2019PK080125

PATIENT
  Sex: Female

DRUGS (1)
  1. COSENTYX [Suspect]
     Active Substance: SECUKINUMAB
     Indication: PSORIASIS
     Dosage: 300 MG, UNK (WEEKLY FOR 5 WEEKS THEN MONTHLY)
     Route: 058
     Dates: start: 20181126, end: 20190224

REACTIONS (4)
  - Pyrexia [Not Recovered/Not Resolved]
  - Drug ineffective [Recovered/Resolved with Sequelae]
  - Asthenia [Not Recovered/Not Resolved]
  - Psoriasis [Recovered/Resolved with Sequelae]

NARRATIVE: CASE EVENT DATE: 20181224
